FAERS Safety Report 4869941-5 (Version None)
Quarter: 2005Q4

REPORT INFORMATION
  Report Type: 
  Country: None (occurrence: None)
  Receive Date: 20051230
  Receipt Date: 20051208
  Transmission Date: 20060501
  Serious: Yes (Hospitalization, Other)
  Sender: FDA-Public Use
  Company Number: US-MERCK-0512USA01513

PATIENT
  Age: 60 Year
  Sex: Male
  Weight: 125 kg

DRUGS (10)
  1. VIOXX [Suspect]
     Indication: ARTHRALGIA
     Route: 048
     Dates: end: 20030101
  2. VIOXX [Suspect]
     Indication: LIMB INJURY
     Route: 048
     Dates: end: 20030101
  3. ZOLOFT [Concomitant]
     Route: 065
  4. [COMPOSITION UNSPECIFIED] [Concomitant]
     Route: 065
  5. FLONASE [Concomitant]
     Route: 065
  6. NASALCROM [Concomitant]
     Route: 065
  7. URECHOLINE [Concomitant]
     Route: 065
  8. MESTINON [Concomitant]
     Route: 065
  9. CARDURA [Concomitant]
     Route: 065
  10. PREDNISONE [Concomitant]
     Route: 065

REACTIONS (9)
  - ANEURYSM [None]
  - ARTERIAL OCCLUSIVE DISEASE [None]
  - DEHYDRATION [None]
  - DYSPEPSIA [None]
  - HERNIA [None]
  - MYOCARDIAL INFARCTION [None]
  - OCULAR MYASTHENIA [None]
  - SKIN LACERATION [None]
  - UROLOGICAL EXAMINATION ABNORMAL [None]
